FAERS Safety Report 26082080 (Version 1)
Quarter: 2025Q4

REPORT INFORMATION
  Report Type: Spontaneous
  Country: US (occurrence: US)
  Receive Date: 20251124
  Receipt Date: 20251124
  Transmission Date: 20260117
  Serious: No
  Sender: AMGEN
  Company Number: US-AMGEN-USASP2025228374

PATIENT
  Age: 60 Year
  Sex: Female

DRUGS (1)
  1. EVENITY [Suspect]
     Active Substance: ROMOSOZUMAB-AQQG
     Indication: Osteoporosis
     Dosage: QMO
     Route: 065
     Dates: start: 20250825

REACTIONS (7)
  - Blood sodium decreased [Recovering/Resolving]
  - Blood cholesterol increased [Unknown]
  - Dairy intolerance [Unknown]
  - Abdominal distension [Unknown]
  - Flatulence [Unknown]
  - Food intolerance [Unknown]
  - Paraesthesia [Unknown]

NARRATIVE: CASE EVENT DATE: 20250101
